FAERS Safety Report 6637711-3 (Version None)
Quarter: 2010Q1

REPORT INFORMATION
  Report Type: 
  Country: None (occurrence: None)
  Receive Date: 20100317
  Receipt Date: 20100309
  Transmission Date: 20100710
  Serious: No
  Sender: FDA-Public Use
  Company Number: US-CEPHALON-2010001408

PATIENT
  Sex: Male

DRUGS (1)
  1. FENTORA [Suspect]
     Indication: NEURALGIA
     Route: 002
     Dates: start: 20091001

REACTIONS (2)
  - DRUG INTOLERANCE [None]
  - DRUG PRESCRIBING ERROR [None]
